FAERS Safety Report 19311276 (Version 1)
Quarter: 2021Q2

REPORT INFORMATION
  Report Type: Spontaneous
  Country: US (occurrence: US)
  Receive Date: 20210527
  Receipt Date: 20210527
  Transmission Date: 20210717
  Serious: Yes (Other)
  Sender: FDA-Public Use
  Company Number: US-GLAXOSMITHKLINE-USCH2021031725

PATIENT
  Age: 84 Year
  Sex: Female

DRUGS (1)
  1. GAS?X [Suspect]
     Active Substance: DIMETHICONE
     Indication: FLATULENCE
     Dosage: 3 DF
     Dates: start: 20210523

REACTIONS (1)
  - Haematochezia [Unknown]

NARRATIVE: CASE EVENT DATE: 20210524
